FAERS Safety Report 6352293 (Version 3)
Quarter: 2017Q2

REPORT INFORMATION
  Report Type: Spontaneous
  Country: FR (occurrence: FR)
  Receive Date: 20070709
  Receipt Date: 20170621
  Transmission Date: 20170830
  Serious: Yes (Other)
  Sender: FDA-Public Use
  Company Number: PHBS2007FR11228

PATIENT
  Sex: Female
  Weight: 1.7 kg

DRUGS (5)
  1. PARLODEL [Suspect]
     Active Substance: BROMOCRIPTINE MESYLATE
     Indication: FOETAL EXPOSURE DURING PREGNANCY
     Dosage: MATERNAL DOSE: 7.5 MG, TID
     Route: 064
  2. CELESTENE [Suspect]
     Active Substance: BETAMETHASONE
     Indication: FOETAL EXPOSURE DURING PREGNANCY
     Dosage: MATERNAL DOSE 12 MG, QID
     Route: 064
  3. SALBUTAMOL [Suspect]
     Active Substance: ALBUTEROL
     Indication: FOETAL EXPOSURE DURING PREGNANCY
     Route: 064
  4. MADOPAR [Suspect]
     Active Substance: BENSERAZIDE HYDROCHLORIDE\LEVODOPA
     Indication: FOETAL EXPOSURE DURING PREGNANCY
     Dosage: MATERNAL DOSE 62.5 MG, TID
     Route: 064
  5. ATOSIBAN [Suspect]
     Active Substance: ATOSIBAN
     Indication: FOETAL EXPOSURE DURING PREGNANCY
     Route: 064

REACTIONS (5)
  - Neonatal respiratory distress syndrome [Recovered/Resolved]
  - Low birth weight baby [Unknown]
  - Foetal heart rate abnormal [Unknown]
  - Premature baby [Unknown]
  - Foetal exposure during pregnancy [Unknown]
